FAERS Safety Report 10486744 (Version 2)
Quarter: 2014Q4

REPORT INFORMATION
  Report Type: Spontaneous
  Country: AU (occurrence: None)
  Receive Date: 20140929
  Receipt Date: 20141027
  Transmission Date: 20150528
  Serious: Yes (Other)
  Sender: FDA-Public Use
  Company Number: 2014-20358

PATIENT
  Age: 78 Year
  Sex: Female

DRUGS (4)
  1. EYLEA [Suspect]
     Active Substance: AFLIBERCEPT
     Indication: NEOVASCULAR AGE-RELATED MACULAR DEGENERATION
     Dosage: 2 MG, IN LEFT EYE LOADING DOSE, INTRAOCULAR
     Route: 031
     Dates: start: 20140709, end: 20140709
  2. ASPRIN (ACETYLSALICYLIC ACID) [Concomitant]
  3. ZANIDIP (LERCANIPINE HYDROCHLORIDE) [Concomitant]
  4. LIPITOR [Concomitant]
     Active Substance: ATORVASTATIN CALCIUM

REACTIONS (3)
  - Intraocular pressure increased [None]
  - Eye haemorrhage [None]
  - Nasopharyngitis [None]
